FAERS Safety Report 7548196-7 (Version None)
Quarter: 2011Q2

REPORT INFORMATION
  Report Type: 
  Country: None (occurrence: None)
  Receive Date: 20110615
  Receipt Date: 20110602
  Transmission Date: 20111010
  Serious: Yes (Hospitalization, Other)
  Sender: FDA-Public Use
  Company Number: US-BAYER-201038671NA

PATIENT
  Age: 21 Year
  Sex: Female
  Weight: 86 kg

DRUGS (10)
  1. ZOLOFT [Concomitant]
     Dosage: UNK
     Dates: start: 20090101, end: 20090101
  2. DEPO-PROVERA [Concomitant]
     Dosage: UNK
     Dates: start: 20090103, end: 20100201
  3. SERTRALINE HYDROCHLORIDE [Concomitant]
     Indication: DEPRESSION
     Dosage: 50 MG, UNK
     Route: 048
     Dates: start: 20090116
  4. SUDAFED 12 HOUR [Concomitant]
     Dosage: 120 MG, UNK
  5. PAXIL [Concomitant]
     Indication: ANXIETY
     Dosage: 20 MG, UNK
     Route: 048
     Dates: start: 20080512
  6. YAZ [Suspect]
     Route: 048
     Dates: start: 20080501, end: 20090101
  7. CYCLOBENZAPRINE [Concomitant]
     Indication: CHEST PAIN
     Dosage: 10 MG, UNK
     Route: 048
     Dates: start: 20090414
  8. IBUPROFEN [Concomitant]
     Dosage: 300 MG, UNK
  9. PAROXETINE HCL [Concomitant]
     Dosage: 20 MG, UNK
  10. MUCINEX [Concomitant]
     Indication: BRONCHITIS
     Dosage: 600 MG, UNK
     Dates: start: 20090512

REACTIONS (6)
  - GALLBLADDER INJURY [None]
  - VOMITING [None]
  - CHOLECYSTITIS ACUTE [None]
  - CHOLELITHIASIS [None]
  - ABDOMINAL PAIN UPPER [None]
  - NAUSEA [None]
